FAERS Safety Report 5327257-7 (Version None)
Quarter: 2007Q2

REPORT INFORMATION
  Report Type: 
  Country: None (occurrence: None)
  Receive Date: 20070517
  Receipt Date: 20070507
  Transmission Date: 20071010
  Serious: Yes (Hospitalization)
  Sender: FDA-Public Use
  Company Number: DE-ROCHE-494267

PATIENT
  Age: 20 Year
  Sex: Male

DRUGS (1)
  1. ROACCUTAN [Suspect]
     Dosage: THE PATIENT COMPLETED THE TREATMENT COURSE.
     Route: 065
     Dates: start: 20060101, end: 20060101

REACTIONS (1)
  - HEPATIC NEOPLASM [None]
